FAERS Safety Report 9285084 (Version 3)
Quarter: 2013Q3

REPORT INFORMATION
  Report Type: Spontaneous
  Country: US (occurrence: US)
  Receive Date: 20130513
  Receipt Date: 20130806
  Transmission Date: 20140515
  Serious: Yes (Other)
  Sender: FDA-Public Use
  Company Number: US-JNJFOC-20130500160

PATIENT
  Age: 8 Year
  Sex: Female
  Weight: 22.9 kg

DRUGS (8)
  1. METHYLPHENIDATE HCL (WATSON) [Suspect]
     Indication: ATTENTION DEFICIT/HYPERACTIVITY DISORDER
     Dosage: QAM- EVERY MORNING
     Route: 048
     Dates: start: 20130329, end: 20130409
  2. METHYLPHENIDATE HCL (WATSON) [Suspect]
     Indication: ATTENTION DEFICIT/HYPERACTIVITY DISORDER
     Dosage: QAM-EVERY MORNING
     Route: 048
     Dates: start: 20130422, end: 20130429
  3. CONCERTA [Suspect]
     Indication: ATTENTION DEFICIT/HYPERACTIVITY DISORDER
     Route: 048
     Dates: start: 20130329
  4. FISH OIL [Concomitant]
     Indication: ROUTINE HEALTH MAINTENANCE
     Route: 065
     Dates: start: 201208
  5. PROBIOTIC [Concomitant]
     Indication: ROUTINE HEALTH MAINTENANCE
     Route: 065
     Dates: start: 201208
  6. CANDISOL [Concomitant]
     Indication: FUNGAL INFECTION
     Route: 065
     Dates: start: 201208
  7. VITAMIN B6 [Concomitant]
     Indication: RELAXATION THERAPY
     Route: 065
     Dates: start: 201208
  8. TYROSINE [Concomitant]
     Indication: RELAXATION THERAPY
     Route: 065
     Dates: start: 201208

REACTIONS (2)
  - Epistaxis [Recovered/Resolved]
  - Dyspnoea [Recovered/Resolved]
